FAERS Safety Report 14165857 (Version 7)
Quarter: 2022Q1

REPORT INFORMATION
  Report Type: Spontaneous
  Country: US (occurrence: US)
  Receive Date: 20171107
  Receipt Date: 20220314
  Transmission Date: 20220423
  Serious: Yes (Death, Hospitalization, Other)
  Sender: FDA-Public Use
  Company Number: US-SAOL THERAPEUTICS-2017SAO01709

PATIENT
  Age: 25 Year
  Sex: Male
  Weight: 92.8 kg

DRUGS (17)
  1. LIORESAL [Suspect]
     Active Substance: BACLOFEN
     Indication: Muscle spasticity
     Dosage: 937 ?G, \DAY
     Route: 037
  2. LIORESAL [Suspect]
     Active Substance: BACLOFEN
     Dosage: 924.7 ?G, \DAY
     Route: 037
     Dates: start: 20170614, end: 20170823
  3. LIORESAL [Suspect]
     Active Substance: BACLOFEN
     Dosage: 973.8 ?G, \DAY
     Route: 037
     Dates: start: 20170823
  4. COLACE [Concomitant]
     Active Substance: DOCUSATE SODIUM
     Dosage: 50 MG, UP TO 1X/DAY
     Route: 048
  5. LORAZEPAM [Concomitant]
     Active Substance: LORAZEPAM
     Dosage: 1 MG, 1X/DAY
     Route: 048
  6. LORAZEPAM [Concomitant]
     Active Substance: LORAZEPAM
     Dosage: 2 MG, 1X/DAY
     Route: 048
  7. ONE-A-DAY MEN^S HEALTH FORMULA [Concomitant]
     Dosage: 1 TABLETS, 1X/DAY
     Route: 048
  8. VITAMIN C [Concomitant]
     Active Substance: ASCORBIC ACID
     Dosage: 1000 MG, 1X/DAY
     Route: 048
  9. VITAMIN D3 [Concomitant]
     Active Substance: CHOLECALCIFEROL
     Dosage: 5000 IU, 1X/DAY
     Route: 048
  10. BACLOFEN [Suspect]
     Active Substance: BACLOFEN
     Dosage: 20 MG, 3X/DAY
     Route: 048
  11. CYCLOBENZAPRINE [Concomitant]
     Active Substance: CYCLOBENZAPRINE
     Dosage: 10 MG, UP TO 2X/DAY
     Route: 048
  12. GABAPENTIN [Concomitant]
     Active Substance: GABAPENTIN
     Dosage: 800 MG, 3X/DAY
     Route: 048
  13. OXYCODONE [Concomitant]
     Active Substance: OXYCODONE
     Dosage: 15 MG, UP TO 6X/DAY
     Route: 048
  14. RANITIDINE [Concomitant]
     Active Substance: RANITIDINE
     Dosage: 300 MG, 2X/DAY
     Route: 048
  15. TRAZODONE [Concomitant]
     Active Substance: TRAZODONE HYDROCHLORIDE
     Dosage: 100 MG, 1X/DAY
     Route: 048
  16. VENLAFAXINE [Concomitant]
     Active Substance: VENLAFAXINE HYDROCHLORIDE
     Dosage: 75 MG, 3X/DAY
     Route: 048
  17. VITAMIN A [Concomitant]
     Active Substance: VITAMIN A
     Dosage: 20000 IU, 1X/DAY
     Route: 048

REACTIONS (31)
  - Drug withdrawal syndrome [Fatal]
  - Sepsis [Fatal]
  - Osteomyelitis [Unknown]
  - Decubitus ulcer [Unknown]
  - Brain injury [Fatal]
  - Klebsiella infection [Unknown]
  - Implant site scar [Unknown]
  - Implant site reaction [Unknown]
  - Device dislocation [Unknown]
  - Staphylococcal infection [Unknown]
  - Enterococcal infection [Unknown]
  - Muscle spasticity [Unknown]
  - Troponin increased [Unknown]
  - Urosepsis [Unknown]
  - Leukocytosis [Unknown]
  - Loss of consciousness [Unknown]
  - Supraventricular tachycardia [Unknown]
  - Blood pressure increased [Unknown]
  - Tachypnoea [Unknown]
  - Cardio-respiratory arrest [Unknown]
  - Mental status changes [Unknown]
  - Headache [Unknown]
  - Pain [Unknown]
  - Abdominal pain [Unknown]
  - Joint contracture [Unknown]
  - Muscle atrophy [Unknown]
  - Constipation [Unknown]
  - Hyperhidrosis [Unknown]
  - Anxiety [Unknown]
  - Device physical property issue [Not Recovered/Not Resolved]
  - Device leakage [Not Recovered/Not Resolved]

NARRATIVE: CASE EVENT DATE: 20171025
